FAERS Safety Report 9187350 (Version 4)
Quarter: 2013Q4

REPORT INFORMATION
  Report Type: Report from Study
  Country: CA (occurrence: CA)
  Receive Date: 20130325
  Receipt Date: 20131129
  Transmission Date: 20140711
  Serious: Yes (Other)
  Sender: FDA-Public Use
  Company Number: PHHY2013CA028419

PATIENT
  Age: 64 Year
  Sex: Female

DRUGS (1)
  1. SANDOSTATIN LAR [Suspect]
     Indication: ACROMEGALY
     Dosage: 20 MG, EVERY 4 WEEKS
     Route: 030
     Dates: start: 20041228

REACTIONS (7)
  - Thyroid neoplasm [Unknown]
  - Upper limb fracture [Unknown]
  - Fall [Unknown]
  - Limb injury [Unknown]
  - Pain in extremity [Unknown]
  - Hypokinesia [Unknown]
  - Cough [Unknown]
